FAERS Safety Report 4851132-5 (Version None)
Quarter: 2005Q4

REPORT INFORMATION
  Report Type: 
  Country: None (occurrence: None)
  Receive Date: 20051208
  Receipt Date: 20051130
  Transmission Date: 20060501
  Serious: Yes (Hospitalization, Other)
  Sender: FDA-Public Use
  Company Number: US-2005-025313

PATIENT
  Age: 24 Year
  Sex: Female
  Weight: 73.5 kg

DRUGS (1)
  1. YASMIN [Suspect]
     Indication: MENSTRUATION IRREGULAR
     Dosage: 1 TAB(S), 1X/DAY, ORAL
     Route: 048
     Dates: start: 20041201, end: 20051119

REACTIONS (2)
  - INTRACRANIAL VENOUS SINUS THROMBOSIS [None]
  - SYSTEMIC LUPUS ERYTHEMATOSUS [None]
